FAERS Safety Report 25245048 (Version 1)
Quarter: 2025Q2

REPORT INFORMATION
  Report Type: Spontaneous
  Country: US (occurrence: None)
  Receive Date: 20250425
  Receipt Date: 20250425
  Transmission Date: 20250716
  Serious: Yes (Disabling)
  Sender: FDA-CTU
  Company Number: None

PATIENT
  Age: 58 Year
  Sex: Female
  Weight: 87.75 kg

DRUGS (3)
  1. CIPRO [Suspect]
     Active Substance: CIPROFLOXACIN HYDROCHLORIDE
     Indication: Urinary tract infection
     Dosage: FREQUENCY : TWICE A DAY;?
     Route: 048
     Dates: start: 20240305, end: 20240312
  2. VITAMIN D3 [Concomitant]
     Active Substance: CHOLECALCIFEROL
  3. MAGNESIUM [Concomitant]
     Active Substance: MAGNESIUM

REACTIONS (5)
  - Rash [None]
  - Muscle atrophy [None]
  - Gait disturbance [None]
  - Loss of personal independence in daily activities [None]
  - Neuropathy peripheral [None]

NARRATIVE: CASE EVENT DATE: 20240305
